FAERS Safety Report 25247106 (Version 1)
Quarter: 2025Q2

REPORT INFORMATION
  Report Type: Spontaneous
  Country: US (occurrence: US)
  Receive Date: 20250428
  Receipt Date: 20250428
  Transmission Date: 20250716
  Serious: No
  Sender: JOHNSON AND JOHNSON
  Company Number: US-JNJFOC-20250420027

PATIENT
  Age: 87 Year
  Sex: Male

DRUGS (9)
  1. ERLEADA [Suspect]
     Active Substance: APALUTAMIDE
     Indication: Neoplasm malignant
     Route: 048
  2. RELUGOLIX [Suspect]
     Active Substance: RELUGOLIX
     Indication: Diabetes mellitus
  3. DUTASTERIDE [Concomitant]
     Active Substance: DUTASTERIDE
  4. GLIPIZIDE [Concomitant]
     Active Substance: GLIPIZIDE
  5. LOSARTAN [Concomitant]
     Active Substance: LOSARTAN
  6. METFORMIN [Concomitant]
     Active Substance: METFORMIN HYDROCHLORIDE
  7. FARXIGA [Concomitant]
     Active Substance: DAPAGLIFLOZIN PROPANEDIOL
  8. TAMSULOSIN [Concomitant]
     Active Substance: TAMSULOSIN
  9. ATORVASTATIN [Concomitant]
     Active Substance: ATORVASTATIN

REACTIONS (3)
  - Dry skin [Unknown]
  - Penile size reduced [Unknown]
  - Urinary incontinence [Unknown]
